FAERS Safety Report 8734605 (Version 2)
Quarter: 2012Q4

REPORT INFORMATION
  Report Type: Report from Study
  Country: JP (occurrence: JP)
  Receive Date: 20120821
  Receipt Date: 20121121
  Transmission Date: 20130627
  Serious: Yes (Death, Life-Threatening)
  Sender: FDA-Public Use
  Company Number: JP-EISAI INC-E7389-02880-CLI-JP

PATIENT
  Age: 65 Year
  Sex: Female
  Weight: 52 kg

DRUGS (6)
  1. HALAVEN [Suspect]
     Indication: BREAST CANCER RECURRENT
     Route: 041
     Dates: start: 20110812, end: 20111018
  2. HALAVEN [Suspect]
     Indication: METASTASES TO LUNG
  3. HALAVEN [Suspect]
     Indication: METASTASES TO BONE
  4. HALAVEN [Suspect]
     Indication: METASTASES TO SKIN
  5. DEXART [Concomitant]
     Indication: PROPHYLAXIS
     Route: 041
  6. MORPHINE [Concomitant]
     Indication: PAIN
     Route: 013

REACTIONS (3)
  - Pneumonia [Fatal]
  - Neutropenia [Recovered/Resolved]
  - Leukopenia [Recovered/Resolved]
